FAERS Safety Report 20899147 (Version 1)
Quarter: 2022Q2

REPORT INFORMATION
  Report Type: Spontaneous
  Country: US (occurrence: US)
  Receive Date: 20220601
  Receipt Date: 20220601
  Transmission Date: 20220721
  Serious: No
  Sender: FDA-Public Use
  Company Number: US-ORGANON-O2205USA001859

PATIENT
  Age: 31 Year
  Sex: Female

DRUGS (19)
  1. FOLLISTIM AQ [Suspect]
     Active Substance: FOLLITROPIN
     Indication: Infertility female
     Dosage: 900 UNT/ 1.08 ML, INJECT 225 UNITS UNDER THE SKIN ONCE DAILY AS DIRECTED
     Route: 058
     Dates: start: 20220401
  2. PREDNISONE [Suspect]
     Active Substance: PREDNISONE
     Dosage: UNK
     Route: 048
     Dates: start: 202204
  3. APRI [Concomitant]
     Active Substance: DESOGESTREL\ETHINYL ESTRADIOL
  4. ASPIRIN [Concomitant]
     Active Substance: ASPIRIN
  5. CABERGOLINE [Concomitant]
     Active Substance: CABERGOLINE
  6. COENZYME Q10 [Concomitant]
     Active Substance: DIETARY SUPPLEMENT\UBIDECARENONE
  7. ENDOMETRIN [Concomitant]
     Active Substance: PROGESTERONE
  8. FISH OIL [Concomitant]
     Active Substance: FISH OIL
  9. FOLATE SODIUM [Concomitant]
     Active Substance: FOLATE SODIUM
  10. GANIRELIX ACETATE [Concomitant]
     Active Substance: GANIRELIX ACETATE
  11. LEUPROLIDE ACETATE [Concomitant]
     Active Substance: LEUPROLIDE ACETATE
  12. MAGNESIUM [Concomitant]
     Active Substance: MAGNESIUM
  13. MENOPUR [Concomitant]
     Active Substance: FOLLITROPIN\LUTEINIZING HORMONE
  14. PRENATAL [FERROUS SULFATE;FOLIC ACID;ZINC] [Concomitant]
  15. BIFIDOBACTERIUM ANIMALIS LACTIS [Concomitant]
     Active Substance: BIFIDOBACTERIUM ANIMALIS LACTIS
  16. UBIQUINOL [Concomitant]
     Active Substance: UBIQUINOL
  17. VITAMIN C [Concomitant]
     Active Substance: ASCORBIC ACID
  18. VITAMIN D3 [Concomitant]
     Active Substance: CHOLECALCIFEROL
  19. VITAMIN E [Concomitant]
     Active Substance: .ALPHA.-TOCOPHEROL

REACTIONS (2)
  - Chest pain [Recovered/Resolved]
  - Dyspnoea [Recovered/Resolved]

NARRATIVE: CASE EVENT DATE: 20220415
